FAERS Safety Report 7353039-0 (Version None)
Quarter: 2011Q1

REPORT INFORMATION
  Report Type: 
  Country: None (occurrence: None)
  Receive Date: 20110315
  Receipt Date: 20070604
  Transmission Date: 20110831
  Serious: Yes (Hospitalization)
  Sender: FDA-Public Use
  Company Number: B0474067A

PATIENT
  Sex: Male
  Weight: 57 kg

DRUGS (5)
  1. AMBISOME [Concomitant]
     Indication: PNEUMONIA FUNGAL
     Dosage: 125MG PER DAY
     Route: 042
     Dates: start: 20070508, end: 20070509
  2. MODACIN [Suspect]
     Indication: SEPSIS
     Dosage: 2G PER DAY
     Route: 042
     Dates: start: 20070506, end: 20070508
  3. DALACIN [Concomitant]
     Indication: SEPSIS
     Dosage: 120MG PER DAY
     Route: 042
     Dates: start: 20070507, end: 20070510
  4. HUMULIN N [Concomitant]
     Route: 058
  5. CHEMOTHERAPY [Concomitant]

REACTIONS (4)
  - DRUG ERUPTION [None]
  - INFECTION [None]
  - BLISTER [None]
  - TOXIC SKIN ERUPTION [None]
